FAERS Safety Report 23316415 (Version 1)
Quarter: 2023Q4

REPORT INFORMATION
  Report Type: Spontaneous
  Country: US (occurrence: None)
  Receive Date: 20231219
  Receipt Date: 20231219
  Transmission Date: 20240109
  Serious: No
  Sender: FDA-Public Use
  Company Number: US-ROCHE-3452508

PATIENT
  Age: 32 Year
  Sex: Male

DRUGS (1)
  1. HEMLIBRA [Suspect]
     Active Substance: EMICIZUMAB-KXWH
     Indication: Factor VIII deficiency
     Dosage: 150 MG/ML, 60 MG/0.4 ML?108 MG
     Route: 058
     Dates: start: 202212

REACTIONS (2)
  - Haemorrhage [Not Recovered/Not Resolved]
  - Fungal infection [Unknown]

NARRATIVE: CASE EVENT DATE: 20231021
